FAERS Safety Report 10667784 (Version 1)
Quarter: 2014Q4

REPORT INFORMATION
  Report Type: Spontaneous
  Country: IN (occurrence: IN)
  Receive Date: 20141222
  Receipt Date: 20141222
  Transmission Date: 20150529
  Serious: Yes (Hospitalization)
  Sender: FDA-Public Use
  Company Number: IN-MYLANLABS-2014M1015076

PATIENT

DRUGS (1)
  1. LITHIUM [Suspect]
     Active Substance: LITHIUM CARBONATE
     Indication: BIPOLAR DISORDER
     Route: 065

REACTIONS (5)
  - Toxicity to various agents [Recovered/Resolved]
  - Hyporeflexia [Recovered/Resolved]
  - Hypotonia [Recovered/Resolved]
  - Status epilepticus [Recovered/Resolved]
  - Creutzfeldt-Jakob disease [Recovered/Resolved]
